FAERS Safety Report 13773859 (Version 1)
Quarter: 2017Q3

REPORT INFORMATION
  Report Type: Spontaneous
  Country: US (occurrence: US)
  Receive Date: 20170720
  Receipt Date: 20170720
  Transmission Date: 20171127
  Serious: Yes (Other)
  Sender: FDA-Public Use
  Company Number: US-BAYER-2017-137940

PATIENT
  Age: 35 Year
  Sex: Female

DRUGS (1)
  1. SKYLA [Suspect]
     Active Substance: LEVONORGESTREL
     Indication: CONTRACEPTION
     Dosage: 14 MCG/24HR, CONT
     Route: 015
     Dates: start: 20170301

REACTIONS (4)
  - Ruptured ectopic pregnancy [None]
  - Abdominal pain lower [None]
  - Drug ineffective [None]
  - Ectopic pregnancy with contraceptive device [None]

NARRATIVE: CASE EVENT DATE: 2017
